FAERS Safety Report 12400437 (Version 2)
Quarter: 2016Q2

REPORT INFORMATION
  Report Type: Spontaneous
  Country: US (occurrence: US)
  Receive Date: 20160525
  Receipt Date: 20160605
  Transmission Date: 20160815
  Serious: No
  Sender: FDA-Public Use
  Company Number: US-TEVA-660706USA

PATIENT
  Age: 79 Year
  Sex: Female

DRUGS (1)
  1. FENTORA [Suspect]
     Active Substance: FENTANYL CITRATE
     Indication: PRODUCT USED FOR UNKNOWN INDICATION
     Route: 065

REACTIONS (5)
  - Pain [Unknown]
  - Adverse event [Unknown]
  - Gait disturbance [Unknown]
  - Back pain [Unknown]
  - Product physical issue [Unknown]

NARRATIVE: CASE EVENT DATE: 20160515
